FAERS Safety Report 15774351 (Version 1)
Quarter: 2018Q4

REPORT INFORMATION
  Report Type: Spontaneous
  Country: GB (occurrence: GB)
  Receive Date: 20181229
  Receipt Date: 20181229
  Transmission Date: 20190205
  Serious: Yes (Hospitalization)
  Sender: FDA-Public Use
  Company Number: GB-ACCORD-098553

PATIENT
  Age: 78 Year
  Sex: Female

DRUGS (9)
  1. FUROSEMIDE. [Suspect]
     Active Substance: FUROSEMIDE
     Indication: HYPERTENSION
     Route: 048
     Dates: end: 20180302
  2. LOSARTAN. [Concomitant]
     Active Substance: LOSARTAN
  3. FELODIPINE. [Concomitant]
     Active Substance: FELODIPINE
  4. LATANOPROST. [Concomitant]
     Active Substance: LATANOPROST
  5. METFORMIN [Concomitant]
     Active Substance: METFORMIN HYDROCHLORIDE
  6. INDAPAMIDE. [Suspect]
     Active Substance: INDAPAMIDE
     Indication: GASTROOESOPHAGEAL REFLUX DISEASE
     Route: 048
  7. ATORVASTATIN [Concomitant]
     Active Substance: ATORVASTATIN
  8. TRIMETHOPRIM. [Concomitant]
     Active Substance: TRIMETHOPRIM
  9. LANSOPRAZOLE. [Concomitant]
     Active Substance: LANSOPRAZOLE

REACTIONS (6)
  - Hallucination [Unknown]
  - Hyponatraemia [Recovering/Resolving]
  - Confusional state [Unknown]
  - Mobility decreased [Unknown]
  - Blood sodium decreased [Unknown]
  - Urinary tract infection [Unknown]

NARRATIVE: CASE EVENT DATE: 20180302
